FAERS Safety Report 5583875-2 (Version None)
Quarter: 2008Q1

REPORT INFORMATION
  Report Type: 
  Country: None (occurrence: None)
  Receive Date: 20080102
  Receipt Date: 20080102
  Transmission Date: 20080703
  Serious: Yes (Death)
  Sender: FDA-Public Use
  Company Number: None

PATIENT
  Age: 69 Year
  Sex: Male
  Weight: 73.4827 kg

DRUGS (1)
  1. CHANTIX [Suspect]
     Indication: SMOKING CESSATION THERAPY
     Dates: start: 20070901, end: 20071101

REACTIONS (7)
  - ALCOHOLISM [None]
  - COMPLETED SUICIDE [None]
  - COUGH [None]
  - DECREASED ACTIVITY [None]
  - DEPRESSED MOOD [None]
  - FEELING ABNORMAL [None]
  - GUN SHOT WOUND [None]
